FAERS Safety Report 6905638 (Version 3)
Quarter: 2012Q4

REPORT INFORMATION
  Report Type: 
  Country: JP (occurrence: JP)
  Receive Date: 20090210
  Receipt Date: 20120913
  Transmission Date: 20130627
  Serious: Yes (Death)
  Sender: FDA-Public Use
  Company Number: JP-BRISTOL-MYERS SQUIBB COMPANY-14496541

PATIENT
  Age: 72 Year
  Sex: Male

DRUGS (1)
  1. BARACLUDE [Suspect]
     Indication: HEPATITIS B
     Dosage: Last dose:Jan2009
     Route: 048
     Dates: start: 200812, end: 200901

REACTIONS (1)
  - Hyperbilirubinaemia [Fatal]
